FAERS Safety Report 25700023 (Version 1)
Quarter: 2025Q3

REPORT INFORMATION
  Report Type: Spontaneous
  Country: US (occurrence: None)
  Receive Date: 20250818
  Receipt Date: 20250818
  Transmission Date: 20251021
  Serious: Yes (Death)
  Sender: FDA-CTU
  Company Number: None

PATIENT
  Age: 48 Year
  Sex: Female

DRUGS (2)
  1. METFORMIN [Suspect]
     Active Substance: METFORMIN HYDROCHLORIDE
  2. METFORMIN [Concomitant]
     Active Substance: METFORMIN HYDROCHLORIDE

REACTIONS (14)
  - Hydronephrosis [None]
  - Hepatic cirrhosis [None]
  - Septic shock [None]
  - Acute kidney injury [None]
  - Lactic acidosis [None]
  - Metabolic acidosis [None]
  - Leukopenia [None]
  - Thrombocytopenia [None]
  - Purpura fulminans [None]
  - Urosepsis [None]
  - Necrosis [None]
  - Disseminated intravascular coagulation [None]
  - Blood glucose increased [None]
  - Pyelonephritis [None]

NARRATIVE: CASE EVENT DATE: 20240808
